FAERS Safety Report 10467055 (Version 2)
Quarter: 2014Q3

REPORT INFORMATION
  Report Type: Spontaneous
  Country: AU (occurrence: AU)
  Receive Date: 20140922
  Receipt Date: 20140922
  Transmission Date: 20150326
  Serious: Yes (Life-Threatening, Hospitalization, Disabling, Other)
  Sender: FDA-Public Use
  Company Number: AU-ACTAVIS PTY LTD-2014-18767

PATIENT
  Age: 58 Year
  Sex: Female

DRUGS (1)
  1. DOCETAXEL [Suspect]
     Active Substance: DOCETAXEL
     Indication: BREAST CANCER
     Dosage: 118 MG, TC REGIMEN Q 3 WEEKS X 4 CYCLES
     Route: 042
     Dates: start: 20140620, end: 20140822

REACTIONS (4)
  - Laceration [Unknown]
  - Injection site extravasation [Recovered/Resolved with Sequelae]
  - Blister [Unknown]
  - Febrile neutropenia [Unknown]

NARRATIVE: CASE EVENT DATE: 20140801
